FAERS Safety Report 22594406 (Version 1)
Quarter: 2023Q2

REPORT INFORMATION
  Report Type: Spontaneous
  Country: US (occurrence: US)
  Receive Date: 20230613
  Receipt Date: 20230613
  Transmission Date: 20230722
  Serious: Yes (Other)
  Sender: FDA-Public Use
  Company Number: US-MYLANLABS-2023M1062619

PATIENT
  Age: 57 Year
  Sex: Male

DRUGS (6)
  1. PREGABALIN [Suspect]
     Active Substance: PREGABALIN
     Indication: Complex regional pain syndrome
     Dosage: UNK
     Route: 065
  2. PREGABALIN [Suspect]
     Active Substance: PREGABALIN
     Indication: Pain management
  3. GABAPENTIN [Suspect]
     Active Substance: GABAPENTIN
     Indication: Complex regional pain syndrome
     Dosage: UNK
     Route: 065
  4. GABAPENTIN [Suspect]
     Active Substance: GABAPENTIN
     Indication: Pain management
  5. TIZANIDINE [Suspect]
     Active Substance: TIZANIDINE
     Indication: Complex regional pain syndrome
     Dosage: UNK
     Route: 065
  6. TIZANIDINE [Suspect]
     Active Substance: TIZANIDINE
     Indication: Pain management

REACTIONS (1)
  - Treatment failure [Unknown]
